FAERS Safety Report 5305080-7 (Version None)
Quarter: 2007Q2

REPORT INFORMATION
  Report Type: 
  Country: None (occurrence: None)
  Receive Date: 20070423
  Receipt Date: 20070411
  Transmission Date: 20071010
  Serious: Yes (Hospitalization)
  Sender: FDA-Public Use
  Company Number: PL-PFIZER INC-2005162644

PATIENT
  Sex: Female
  Weight: 64 kg

DRUGS (5)
  1. SU-011,248 [Suspect]
     Indication: RENAL CELL CARCINOMA STAGE UNSPECIFIED
     Route: 048
     Dates: start: 20050615, end: 20051124
  2. SU-011,248 [Suspect]
     Route: 048
  3. SU-011,248 [Suspect]
     Route: 048
  4. METOCLOPRAMIDE [Concomitant]
     Route: 048
  5. RANITIDINE [Concomitant]
     Route: 048

REACTIONS (3)
  - ASTHENIA [None]
  - DERMATITIS [None]
  - STOMATITIS [None]
